FAERS Safety Report 10424977 (Version 1)
Quarter: 2014Q3

REPORT INFORMATION
  Report Type: Spontaneous
  Country: US (occurrence: None)
  Receive Date: 20140725
  Receipt Date: 20140725
  Transmission Date: 20150326
  Serious: No
  Sender: FDA-Public Use
  Company Number: AP356-00578-SPO-US

PATIENT
  Age: 31 Year
  Sex: Female
  Weight: 79.55 kg

DRUGS (8)
  1. CLOBETASOL (CLOBETASOL) [Concomitant]
     Active Substance: CLOBETASOL
  2. LABETALOL [Concomitant]
     Active Substance: LABETALOL\LABETALOL HYDROCHLORIDE
  3. TESSALON (BENZONATATE) [Concomitant]
  4. VITAMIN B-12 (CYANOCOBALAMIN) [Concomitant]
  5. BELVIQ [Suspect]
     Active Substance: LORCASERIN HYDROCHLORIDE
     Indication: OBESITY
     Route: 048
     Dates: start: 20140318
  6. ALBUTEROL (SALBUTAMOL) [Concomitant]
     Active Substance: ALBUTEROL
  7. ORTH TRI-CYCLEN (CILEST) [Concomitant]
  8. CLARITIN (GLICLAZIDE) [Concomitant]
     Active Substance: GLICLAZIDE

REACTIONS (2)
  - Fatigue [None]
  - Weight increased [None]

NARRATIVE: CASE EVENT DATE: 201403
